FAERS Safety Report 10845757 (Version 1)
Quarter: 2015Q1

REPORT INFORMATION
  Report Type: Spontaneous
  Country: US (occurrence: US)
  Receive Date: 20150220
  Receipt Date: 20150220
  Transmission Date: 20150721
  Serious: No
  Sender: FDA-Public Use
  Company Number: US-ABBVIE-14P-163-1314322-00

PATIENT

DRUGS (3)
  1. HUMIRA [Suspect]
     Active Substance: ADALIMUMAB
     Indication: PSORIATIC ARTHROPATHY
     Route: 065
  2. HUMIRA [Suspect]
     Active Substance: ADALIMUMAB
     Indication: FIBROMYALGIA
  3. VITAMIN B12 [Concomitant]
     Active Substance: CYANOCOBALAMIN
     Indication: VITAMIN SUPPLEMENTATION

REACTIONS (9)
  - Fatigue [Not Recovered/Not Resolved]
  - Mobility decreased [Unknown]
  - Depression [Unknown]
  - Myalgia [Unknown]
  - Arthralgia [Unknown]
  - Vitamin B12 decreased [Recovering/Resolving]
  - Vitamin D decreased [Recovering/Resolving]
  - Pain [Unknown]
  - Hypersomnia [Unknown]
